FAERS Safety Report 6363655-0 (Version None)
Quarter: 2009Q3

REPORT INFORMATION
  Report Type: 
  Country: None (occurrence: None)
  Receive Date: 20090919
  Receipt Date: 20090706
  Transmission Date: 20100115
  Serious: No
  Sender: FDA-Public Use
  Company Number: US-ABBOTT-09P-163-0583895-00

PATIENT
  Sex: Male

DRUGS (2)
  1. HUMIRA [Suspect]
     Indication: PSORIATIC ARTHROPATHY
     Dates: start: 20081201, end: 20081201
  2. IBUPROFEN [Concomitant]
     Indication: ARTHRALGIA
     Dosage: 12 PILLS DAILY
     Dates: start: 20081201

REACTIONS (1)
  - DRUG DOSE OMISSION [None]
